FAERS Safety Report 14713053 (Version 9)
Quarter: 2023Q1

REPORT INFORMATION
  Report Type: Spontaneous
  Country: US (occurrence: US)
  Receive Date: 20180404
  Receipt Date: 20230126
  Transmission Date: 20230418
  Serious: Yes (Life-Threatening, Hospitalization, Other)
  Sender: FDA-Public Use
  Company Number: US-PFIZER INC-2018131834

PATIENT
  Age: 19 Year
  Sex: Female

DRUGS (10)
  1. HYDROMORPHONE HYDROCHLORIDE [Suspect]
     Active Substance: HYDROMORPHONE HYDROCHLORIDE
     Indication: Congenital musculoskeletal disorder of spine
     Dosage: 10 MG, UNK
  2. HYDROMORPHONE HYDROCHLORIDE [Suspect]
     Active Substance: HYDROMORPHONE HYDROCHLORIDE
     Indication: Organ failure
     Dosage: 2 G, DAILY
  3. HYDROMORPHONE HYDROCHLORIDE [Suspect]
     Active Substance: HYDROMORPHONE HYDROCHLORIDE
     Indication: Autonomic dysreflexia
     Dosage: 60 MG, UNK
  4. HYDROMORPHONE HYDROCHLORIDE [Suspect]
     Active Substance: HYDROMORPHONE HYDROCHLORIDE
     Indication: Gastric hypermotility
     Dosage: 200 ML, WEEKLY
  5. HYDROMORPHONE HYDROCHLORIDE [Suspect]
     Active Substance: HYDROMORPHONE HYDROCHLORIDE
     Indication: Dehydration
     Dosage: 50 ML, UNK
  6. HYDROMORPHONE HYDROCHLORIDE [Suspect]
     Active Substance: HYDROMORPHONE HYDROCHLORIDE
     Dosage: 10 MG/ML, 1X/DAY(285 MG OF HYDROMORPHONE/10 MG/ML INJECTED EVERY 24 HOURS ALONG WITH A ONE OUNCE)
  7. HYDROMORPHONE HYDROCHLORIDE [Suspect]
     Active Substance: HYDROMORPHONE HYDROCHLORIDE
     Dosage: AS NEEDED (10 MG/ML, 50 MG 5X DAILY + PRN (286 MG)
     Route: 058
     Dates: start: 20080910
  8. DILAUDID [Suspect]
     Active Substance: HYDROMORPHONE HYDROCHLORIDE
     Dosage: UNK
  9. OPIUM [Concomitant]
     Active Substance: OPIUM
     Indication: Autonomic dysreflexia
     Dosage: AS NEEDED
  10. OPIUM [Concomitant]
     Active Substance: OPIUM
     Indication: Gastric hypermotility
     Dosage: UNK
     Dates: start: 2010

REACTIONS (4)
  - Condition aggravated [Not Recovered/Not Resolved]
  - Weight decreased [Not Recovered/Not Resolved]
  - Loss of personal independence in daily activities [Not Recovered/Not Resolved]
  - Device occlusion [Recovered/Resolved]

NARRATIVE: CASE EVENT DATE: 20080901
